FAERS Safety Report 13705616 (Version 3)
Quarter: 2018Q2

REPORT INFORMATION
  Report Type: Report from Study
  Country: US (occurrence: US)
  Receive Date: 20170630
  Receipt Date: 20180511
  Transmission Date: 20180711
  Serious: Yes (Other)
  Sender: FDA-Public Use
  Company Number: PHEH2017US019481

PATIENT
  Age: 83 Year
  Sex: Female

DRUGS (2)
  1. TOBI [Suspect]
     Active Substance: TOBRAMYCIN
     Dosage: UNK UNK, BID ( (CONTINUE 28 DAYS ON/28 DAYS OFF)
     Route: 055
  2. TOBI [Suspect]
     Active Substance: TOBRAMYCIN
     Indication: PRODUCT USED FOR UNKNOWN INDICATION
     Dosage: UNK
     Route: 065

REACTIONS (12)
  - Dyspnoea [Unknown]
  - Myalgia [Unknown]
  - Blindness [Unknown]
  - Cough [Unknown]
  - Pseudomonas infection [Unknown]
  - Fatigue [Unknown]
  - Productive cough [Unknown]
  - Rales [Unknown]
  - Eye infection [Unknown]
  - Malaise [Unknown]
  - Back pain [Unknown]
  - Wheezing [Unknown]

NARRATIVE: CASE EVENT DATE: 20180411
